FAERS Safety Report 13946047 (Version 1)
Quarter: 2017Q3

REPORT INFORMATION
  Report Type: Spontaneous
  Country: GB (occurrence: GB)
  Receive Date: 20170907
  Receipt Date: 20170907
  Transmission Date: 20171128
  Serious: Yes (Hospitalization, Other)
  Sender: FDA-Public Use
  Company Number: GB-ACCORD-058008

PATIENT
  Sex: Male

DRUGS (5)
  1. IFOSFAMIDE. [Suspect]
     Active Substance: IFOSFAMIDE
     Indication: NONGERMINOMATOUS GERM CELL TUMOUR OF THE CNS
     Dosage: ALSO RECEIVED ON 11-NOV-2015
     Dates: start: 20151002, end: 20151111
  2. CISPLATIN EBEWE ARZNEIM [Suspect]
     Active Substance: CISPLATIN
     Indication: NONGERMINOMATOUS GERM CELL TUMOUR OF THE CNS
     Dates: start: 20151002
  3. ETOPOSIDE. [Suspect]
     Active Substance: ETOPOSIDE
     Indication: NONGERMINOMATOUS GERM CELL TUMOUR OF THE CNS
     Dosage: ALSO RECEIVED ON 21-OCT-2015
     Dates: start: 20151002, end: 20151021
  4. CYCLOPHOSPHAMIDE/CYCLOPHOSPHAMIDE MONOHYDRATE [Concomitant]
     Indication: NONGERMINOMATOUS GERM CELL TUMOUR OF THE CNS
  5. CARBOPLATIN. [Concomitant]
     Active Substance: CARBOPLATIN
     Indication: NONGERMINOMATOUS GERM CELL TUMOUR OF THE CNS
     Dates: start: 20151021

REACTIONS (4)
  - Off label use [Unknown]
  - Encephalopathy [Unknown]
  - Decorticate posture [Unknown]
  - Neoplasm recurrence [Unknown]

NARRATIVE: CASE EVENT DATE: 20151004
